FAERS Safety Report 10441195 (Version 1)
Quarter: 2014Q3

REPORT INFORMATION
  Report Type: Spontaneous
  Country: US (occurrence: None)
  Receive Date: 20140908
  Receipt Date: 20140908
  Transmission Date: 20150326
  Serious: No
  Sender: FDA-Public Use
  Company Number: None

PATIENT
  Age: 66 Year
  Sex: Female
  Weight: 54.43 kg

DRUGS (9)
  1. ESTRACE VAG CREME [Concomitant]
  2. CALCIUM SUPPLEMENTS [Concomitant]
     Active Substance: CALCIUM
  3. FISH OIL [Concomitant]
     Active Substance: FISH OIL
  4. RAMIPRIL. [Concomitant]
     Active Substance: RAMIPRIL
  5. RESTASIS [Suspect]
     Active Substance: CYCLOSPORINE
     Indication: DRY EYE
     Dosage: VIALS - 1 DROP EACH EYE, TWICE DAILY, DROP IN EYES
     Dates: start: 20130401, end: 20140801
  6. OMEPRAZOLE DR [Concomitant]
     Active Substance: OMEPRAZOLE
  7. GLUCOSAMINE [Concomitant]
     Active Substance: GLUCOSAMINE
  8. SEPTRA DS [Concomitant]
     Active Substance: SULFAMETHOXAZOLE\TRIMETHOPRIM
  9. MELATONIN [Concomitant]
     Active Substance: MELATONIN

REACTIONS (2)
  - Pain of skin [None]
  - Skin burning sensation [None]

NARRATIVE: CASE EVENT DATE: 201408
